FAERS Safety Report 6203089-2 (Version None)
Quarter: 2009Q2

REPORT INFORMATION
  Report Type: 
  Country: None (occurrence: None)
  Receive Date: 20090521
  Receipt Date: 20090521
  Transmission Date: 20091009
  Serious: Yes (Life-Threatening, Hospitalization, Disabling, Other)
  Sender: FDA-Public Use
  Company Number: None

PATIENT
  Age: 44 Year
  Sex: Male
  Weight: 83.0083 kg

DRUGS (2)
  1. LIPITOR [Suspect]
     Dates: start: 20070123, end: 20070205
  2. Z-PACK 3 DAY [Concomitant]

REACTIONS (10)
  - ARRHYTHMIA [None]
  - ATRIOVENTRICULAR BLOCK [None]
  - CARDIAC ARREST [None]
  - DYSPNOEA [None]
  - GAIT DISTURBANCE [None]
  - HEART INJURY [None]
  - HEART RATE DECREASED [None]
  - MIDDLE INSOMNIA [None]
  - NIGHTMARE [None]
  - PALPITATIONS [None]
